FAERS Safety Report 5571598-5 (Version None)
Quarter: 2007Q4

REPORT INFORMATION
  Report Type: 
  Country: None (occurrence: None)
  Receive Date: 20071221
  Receipt Date: 20071215
  Transmission Date: 20080405
  Serious: Yes (Other)
  Sender: FDA-Public Use
  Company Number: IE-ABBOTT-07P-229-0430736-00

PATIENT
  Age: 54 Year
  Sex: Female

DRUGS (5)
  1. CLARITHROMYCIN [Suspect]
     Indication: LOWER RESPIRATORY TRACT INFECTION
  2. CARBAMAZEPINE [Interacting]
     Indication: BIPOLAR DISORDER
  3. HALOPERIDOL [Concomitant]
     Indication: BIPOLAR DISORDER
  4. HALOPERIDOL [Concomitant]
  5. LITHIUM CARBONATE [Concomitant]
     Indication: BIPOLAR DISORDER

REACTIONS (3)
  - BIPOLAR DISORDER [None]
  - DRUG INTERACTION [None]
  - EXTRAPYRAMIDAL DISORDER [None]
